FAERS Safety Report 5417119-9 (Version None)
Quarter: 2007Q3

REPORT INFORMATION
  Report Type: 
  Country: None (occurrence: None)
  Receive Date: 20070718
  Receipt Date: 20060818
  Transmission Date: 20080115
  Serious: Yes (Hospitalization, Other)
  Sender: FDA-Public Use
  Company Number: 2005130979

PATIENT
  Age: 70 Year
  Sex: Female

DRUGS (12)
  1. CELEBREX [Suspect]
     Indication: RHEUMATOID ARTHRITIS
     Dosage: 100 MG (100 MG, 1 IN 1 D)
     Dates: start: 20021101, end: 20031001
  2. PREDNISONE [Concomitant]
  3. METHOTREXATE [Concomitant]
  4. PREVACID [Concomitant]
  5. TOPROL-XL [Concomitant]
  6. AMITRIPTYLINE HCL [Concomitant]
  7. NORVASC [Concomitant]
  8. VICODIN [Concomitant]
  9. ASCORBIC ACID [Concomitant]
  10. FOLIC ACID [Concomitant]
  11. HYDROCHLOROTHIAZIDE [Concomitant]
  12. FLEXERIL [Concomitant]

REACTIONS (1)
  - CEREBROVASCULAR ACCIDENT [None]
